FAERS Safety Report 13449331 (Version 1)
Quarter: 2017Q2

REPORT INFORMATION
  Report Type: Spontaneous
  Country: US (occurrence: US)
  Receive Date: 20170417
  Receipt Date: 20170417
  Transmission Date: 20170830
  Serious: No
  Sender: FDA-Public Use
  Company Number: US-ALK ABELLO INC-1065433

PATIENT
  Age: 39 Year
  Sex: Female

DRUGS (1)
  1. HISTAMINE POSITIVE [Suspect]
     Active Substance: HISTAMINE PHOSPHATE

REACTIONS (1)
  - Drug ineffective [None]
